FAERS Safety Report 24832992 (Version 2)
Quarter: 2025Q1

REPORT INFORMATION
  Report Type: Spontaneous
  Country: US (occurrence: US)
  Receive Date: 20250111
  Receipt Date: 20250111
  Transmission Date: 20250409
  Serious: No
  Sender: ABBVIE
  Company Number: US-ABBVIE-6076638

PATIENT
  Age: 32 Year
  Sex: Female

DRUGS (1)
  1. LILETTA [Suspect]
     Active Substance: LEVONORGESTREL
     Indication: Intrauterine contraception
     Route: 015
     Dates: start: 20241213, end: 20250103

REACTIONS (3)
  - Polycystic ovarian syndrome [Unknown]
  - Device expulsion [Unknown]
  - Nervousness [Unknown]

NARRATIVE: CASE EVENT DATE: 20250103
